FAERS Safety Report 4622844-3 (Version None)
Quarter: 2005Q1

REPORT INFORMATION
  Report Type: 
  Country: None (occurrence: None)
  Receive Date: 20050330
  Receipt Date: 20050325
  Transmission Date: 20050727
  Serious: Yes (Hospitalization)
  Sender: FDA-Public Use
  Company Number: FRPFM-E-20050002

PATIENT
  Age: 57 Year
  Sex: Male

DRUGS (2)
  1. NAVELBINE [Suspect]
     Indication: SKIN CANCER
     Route: 042
     Dates: start: 20040722, end: 20040722
  2. NEORAL [Concomitant]
     Indication: RENAL TRANSPLANT
     Dosage: 90MG TWICE PER DAY

REACTIONS (8)
  - APLASIA [None]
  - ASTHENIA [None]
  - CHILLS [None]
  - COUGH [None]
  - LEUKOPENIA [None]
  - NEUTROPENIA [None]
  - PRODUCTIVE COUGH [None]
  - PYREXIA [None]
